FAERS Safety Report 13357687 (Version 1)
Quarter: 2017Q1

REPORT INFORMATION
  Report Type: Spontaneous
  Country: US (occurrence: US)
  Receive Date: 20170322
  Receipt Date: 20170322
  Transmission Date: 20170429
  Serious: Yes (Hospitalization)
  Sender: FDA-Public Use
  Company Number: US-ACCORD-049191

PATIENT
  Age: 48 Year
  Sex: Female

DRUGS (2)
  1. CLONAZEPAM. [Suspect]
     Active Substance: CLONAZEPAM
     Indication: PRODUCT USED FOR UNKNOWN INDICATION
  2. LOPERAMIDE [Suspect]
     Active Substance: LOPERAMIDE
     Dosage: 20 TO 40 TABLETS 1 TO 2 TIMES A DAY FOR SEVERAL WEEKS

REACTIONS (8)
  - Arrhythmia [Recovered/Resolved]
  - Asthenia [Unknown]
  - Hypotension [Recovered/Resolved]
  - Hyperkalaemia [Recovered/Resolved]
  - Drug abuse [Unknown]
  - Somnolence [Unknown]
  - Ventricular tachycardia [Recovered/Resolved]
  - Dysarthria [Unknown]
